FAERS Safety Report 10081803 (Version 1)
Quarter: 2014Q2

REPORT INFORMATION
  Report Type: Spontaneous
  Country: AU (occurrence: AU)
  Receive Date: 20140416
  Receipt Date: 20140416
  Transmission Date: 20141212
  Serious: Yes (Other)
  Sender: FDA-Public Use
  Company Number: PHHY2014AU042168

PATIENT
  Sex: Female

DRUGS (2)
  1. MYCOPHENOLATE MOFETIL SANDOZ [Suspect]
     Indication: ALLERGIC GRANULOMATOUS ANGIITIS
     Dosage: 500 MG, UNK
     Route: 048
  2. DUROGESIC [Concomitant]

REACTIONS (6)
  - Allergic granulomatous angiitis [Unknown]
  - Headache [Unknown]
  - Flatulence [Unknown]
  - Pain [Unknown]
  - Asthenia [Unknown]
  - Condition aggravated [Unknown]
